FAERS Safety Report 4730402-5 (Version None)
Quarter: 2005Q3

REPORT INFORMATION
  Report Type: 
  Country: None (occurrence: None)
  Receive Date: 20050801
  Receipt Date: 20050607
  Transmission Date: 20060218
  Serious: Yes (Hospitalization)
  Sender: FDA-Public Use
  Company Number: US-MERCK-0506USA01422

PATIENT
  Age: 52 Year
  Sex: Female
  Weight: 122 kg

DRUGS (7)
  1. VIOXX [Suspect]
     Indication: ARTHRITIS
     Route: 048
     Dates: start: 20000727, end: 20040901
  2. VIOXX [Suspect]
     Route: 048
     Dates: start: 20000727, end: 20040901
  3. DIOVAN [Concomitant]
     Route: 065
     Dates: start: 20001016, end: 20050215
  4. LASIX [Concomitant]
     Route: 065
     Dates: start: 20001017, end: 20050215
  5. LABETALOL HYDROCHLORIDE [Concomitant]
     Route: 065
     Dates: start: 20010111, end: 20050215
  6. ZOCOR [Concomitant]
     Route: 048
     Dates: start: 19990825, end: 20040129
  7. PREMARIN [Concomitant]
     Route: 065
     Dates: start: 20031121, end: 20050310

REACTIONS (5)
  - HAEMATOMA [None]
  - HYSTERECTOMY [None]
  - MYOCARDIAL INFARCTION [None]
  - SALPINGO-OOPHORECTOMY BILATERAL [None]
  - VASCULAR PSEUDOANEURYSM [None]
